FAERS Safety Report 5085558-4 (Version None)
Quarter: 2006Q3

REPORT INFORMATION
  Report Type: 
  Country: None (occurrence: None)
  Receive Date: 20060822
  Receipt Date: 20060529
  Transmission Date: 20061208
  Serious: Yes (Death, Other)
  Sender: FDA-Public Use
  Company Number: PHBS2006AT07844

PATIENT
  Age: 68 Year
  Sex: Male
  Weight: 100 kg

DRUGS (1)
  1. VOLTAREN [Suspect]
     Indication: HEADACHE
     Dosage: 50 MG, ONCE/SINGLE
     Route: 048
     Dates: start: 20050406, end: 20050406

REACTIONS (3)
  - CARDIAC FAILURE [None]
  - SYNCOPE [None]
  - VERTIGO [None]
